FAERS Safety Report 24435994 (Version 1)
Quarter: 2024Q4

REPORT INFORMATION
  Report Type: Spontaneous
  Country: US (occurrence: US)
  Receive Date: 20241015
  Receipt Date: 20241015
  Transmission Date: 20250114
  Serious: Yes (Hospitalization)
  Sender: BEIGENE
  Company Number: US-BEIGENE-BGN-2024-016068

PATIENT

DRUGS (2)
  1. BRUKINSA [Suspect]
     Active Substance: ZANUBRUTINIB
     Indication: Chronic lymphocytic leukaemia
     Dosage: TWO IN THE MORNING AND TWO IN THE EVENING
     Route: 048
     Dates: start: 2024
  2. BRUKINSA [Suspect]
     Active Substance: ZANUBRUTINIB
     Dosage: 4 CAPSULES ONCE A DAY
     Route: 048
     Dates: start: 2024

REACTIONS (5)
  - Balanoposthitis [Not Recovered/Not Resolved]
  - Motor dysfunction [Not Recovered/Not Resolved]
  - Back pain [Not Recovered/Not Resolved]
  - Dehydration [Recovered/Resolved]
  - Pruritus [Not Recovered/Not Resolved]
